FAERS Safety Report 25044998 (Version 1)
Quarter: 2025Q1

REPORT INFORMATION
  Report Type: Spontaneous
  Country: FR (occurrence: FR)
  Receive Date: 20250306
  Receipt Date: 20250306
  Transmission Date: 20250408
  Serious: Yes (Hospitalization)
  Sender: RANBAXY
  Company Number: None

PATIENT
  Age: 32 Year
  Sex: Female

DRUGS (6)
  1. MORPHINE [Suspect]
     Active Substance: MORPHINE
     Indication: Product used for unknown indication
     Route: 030
     Dates: start: 19950228, end: 19950228
  2. CLONIDINE [Suspect]
     Active Substance: CLONIDINE
     Indication: Product used for unknown indication
     Route: 040
     Dates: start: 19950225, end: 19950302
  3. GEMEPROST [Suspect]
     Active Substance: GEMEPROST
     Indication: Product used for unknown indication
     Route: 067
     Dates: start: 19950225, end: 19950225
  4. MIFEPRISTONE [Suspect]
     Active Substance: MIFEPRISTONE
     Indication: Product used for unknown indication
     Route: 048
     Dates: start: 19950227, end: 19950228
  5. DIHYDRALAZINE [Suspect]
     Active Substance: DIHYDRALAZINE
     Indication: Product used for unknown indication
     Route: 048
     Dates: start: 19950225, end: 19950228
  6. SYNTOCINON [Suspect]
     Active Substance: OXYTOCIN
     Indication: Nonspecific reaction
     Route: 040
     Dates: start: 19950228, end: 19950228

REACTIONS (1)
  - Pulmonary oedema [Recovered/Resolved]

NARRATIVE: CASE EVENT DATE: 19950228
